FAERS Safety Report 5108051-9 (Version None)
Quarter: 2006Q3

REPORT INFORMATION
  Report Type: 
  Country: None (occurrence: None)
  Receive Date: 20060915
  Receipt Date: 20060831
  Transmission Date: 20061208
  Serious: Yes (Death, Hospitalization)
  Sender: FDA-Public Use
  Company Number: US-2006-025736

PATIENT
  Age: 39 Year
  Sex: Male

DRUGS (2)
  1. BETASERON [Suspect]
     Indication: SECONDARY PROGRESSIVE MULTIPLE SCLEROSIS
     Dosage: 8 MIU, EVERY 2D, SUBCUTANEOUS
     Route: 058
     Dates: start: 19951108, end: 20030202
  2. BETASERON [Suspect]
     Indication: SECONDARY PROGRESSIVE MULTIPLE SCLEROSIS
     Dosage: 8 MIU, EVERY 2D, SUBCUTANEOUS
     Route: 058
     Dates: start: 20040904, end: 20060815

REACTIONS (5)
  - CHOLECYSTECTOMY [None]
  - DISEASE RECURRENCE [None]
  - DYSPHAGIA [None]
  - POST PROCEDURAL COMPLICATION [None]
  - URINARY TRACT INFECTION [None]
